APPROVED DRUG PRODUCT: FORTEO
Active Ingredient: TERIPARATIDE
Strength: 0.56MG/2.24ML (0.25MG/ML)
Dosage Form/Route: SOLUTION;SUBCUTANEOUS
Application: N021318 | Product #002 | TE Code: AP
Applicant: ELI LILLY AND CO
Approved: Jun 25, 2008 | RLD: Yes | RS: Yes | Type: RX